FAERS Safety Report 14444733 (Version 8)
Quarter: 2018Q2

REPORT INFORMATION
  Report Type: Report from Study
  Country: IE (occurrence: IE)
  Receive Date: 20180126
  Receipt Date: 20180411
  Transmission Date: 20180711
  Serious: Yes (Hospitalization)
  Sender: FDA-Public Use
  Company Number: IE-ROCHE-2043639

PATIENT
  Age: 65 Year
  Sex: Female
  Weight: 67 kg

DRUGS (23)
  1. PAROX (IRELAND) [Concomitant]
     Route: 048
     Dates: start: 201301
  2. CEFOTAXIME [Concomitant]
     Active Substance: CEFOTAXIME SODIUM
     Indication: INFUSION RELATED REACTION
     Route: 042
     Dates: start: 20171123, end: 20171125
  3. HYDROCORTISONE. [Concomitant]
     Active Substance: HYDROCORTISONE
     Indication: INFUSION RELATED REACTION
     Route: 042
     Dates: start: 20171123, end: 20171123
  4. VANCOMYCIN [Concomitant]
     Active Substance: VANCOMYCIN
     Indication: INFUSION RELATED REACTION
     Route: 042
     Dates: start: 20171124, end: 20171125
  5. ATEZOLIZUMAB. [Suspect]
     Active Substance: ATEZOLIZUMAB
     Indication: NEOPLASM
     Dosage: DAY 1 OF CYCLE 1?MOST RECENT DOSE ON 23/NOV/2017, AT 13.15?CYCLE 4 WAS CURRENTLY ON HOLD
     Route: 042
     Dates: start: 20171013
  6. XANAX [Concomitant]
     Active Substance: ALPRAZOLAM
     Route: 048
     Dates: start: 200701
  7. COVERSYL [Concomitant]
     Active Substance: PERINDOPRIL
     Route: 048
     Dates: start: 201401
  8. VANCOMYCIN [Concomitant]
     Active Substance: VANCOMYCIN
     Indication: INFUSION RELATED REACTION
     Route: 042
     Dates: start: 20171123, end: 20171123
  9. ONDANSETRON [Concomitant]
     Active Substance: ONDANSETRON
     Indication: INFUSION RELATED REACTION
     Route: 042
     Dates: start: 20171123, end: 20171123
  10. XALATAN [Concomitant]
     Active Substance: LATANOPROST
     Route: 047
     Dates: start: 200001
  11. PIRITON [Concomitant]
     Active Substance: CHLORPHENIRAMINE MALEATE
     Indication: INFUSION RELATED REACTION
     Route: 042
     Dates: start: 20171123, end: 20171123
  12. PARACETAMOL [Concomitant]
     Active Substance: ACETAMINOPHEN
     Route: 048
     Dates: start: 20180117
  13. PIRITON [Concomitant]
     Active Substance: CHLORPHENIRAMINE MALEATE
     Route: 048
     Dates: start: 20180117
  14. CO-AMOXICLAV [Concomitant]
     Active Substance: AMOXICILLIN\CLAVULANIC ACID
     Indication: INFUSION RELATED REACTION
     Route: 048
     Dates: start: 20171125, end: 20171127
  15. CLEXANE [Concomitant]
     Active Substance: ENOXAPARIN SODIUM
     Route: 058
     Dates: start: 20171215, end: 20171228
  16. PALEXIA [Concomitant]
     Active Substance: TAPENTADOL HYDROCHLORIDE
     Route: 048
     Dates: start: 201609
  17. LACTULOSE. [Concomitant]
     Active Substance: LACTULOSE
     Indication: INFUSION RELATED REACTION
     Route: 048
     Dates: start: 20171125, end: 20171125
  18. PREDNISOLONE. [Concomitant]
     Active Substance: PREDNISOLONE
     Route: 048
     Dates: start: 20171225, end: 20171229
  19. VANCOMYCIN [Concomitant]
     Active Substance: VANCOMYCIN
     Route: 042
     Dates: start: 20171124, end: 20171125
  20. PARACETAMOL [Concomitant]
     Active Substance: ACETAMINOPHEN
     Indication: INFUSION RELATED REACTION
     Route: 048
     Dates: start: 20171123, end: 20171123
  21. PARACETAMOL [Concomitant]
     Active Substance: ACETAMINOPHEN
     Indication: FEBRILE NEUTROPENIA
     Route: 048
     Dates: start: 20171215, end: 20171220
  22. CO-AMOXICLAV [Concomitant]
     Active Substance: AMOXICILLIN\CLAVULANIC ACID
     Route: 048
     Dates: start: 20171128, end: 20171201
  23. VANCOMYCIN [Concomitant]
     Active Substance: VANCOMYCIN
     Route: 042
     Dates: start: 20171220, end: 20171220

REACTIONS (2)
  - Oral infection [Recovered/Resolved]
  - Febrile neutropenia [Recovered/Resolved]

NARRATIVE: CASE EVENT DATE: 20171214
